FAERS Safety Report 19669726 (Version 1)
Quarter: 2021Q3

REPORT INFORMATION
  Report Type: Report from Study
  Country: JP (occurrence: JP)
  Receive Date: 20210806
  Receipt Date: 20210806
  Transmission Date: 20211014
  Serious: Yes (Death)
  Sender: FDA-Public Use
  Company Number: JP-PFIZER INC-202100992990

PATIENT

DRUGS (3)
  1. CARBOPLATIN. [Suspect]
     Active Substance: CARBOPLATIN
     Indication: NON-SMALL CELL LUNG CANCER
     Dosage: AUC 6, CYCLIC (ON DAY 1 OF THE FIRST 21?DAY CYCLE)
  2. PACLITAXEL. [Suspect]
     Active Substance: PACLITAXEL
     Indication: NON-SMALL CELL LUNG CANCER
     Dosage: 200 MG/M2, CYCLIC, (ON DAY 1 OF THE FIRST 21?DAY CYCLE)
  3. BEVACIZUMAB. [Suspect]
     Active Substance: BEVACIZUMAB
     Indication: NON-SMALL CELL LUNG CANCER
     Dosage: 15 MG/KG, CYCLIC (ON DAY 1 OF THE SECOND THROUGH SIXTH 21?DAY CYCLES)

REACTIONS (1)
  - Sudden death [Fatal]
